FAERS Safety Report 11902539 (Version 1)
Quarter: 2016Q1

REPORT INFORMATION
  Report Type: Spontaneous
  Country: US (occurrence: US)
  Receive Date: 20160108
  Receipt Date: 20160108
  Transmission Date: 20160526
  Serious: Yes (Other)
  Sender: FDA-Public Use
  Company Number: US-SMITH AND NEPHEW, INC-2015SMT00705

PATIENT
  Age: 46 Year
  Sex: Female

DRUGS (1)
  1. REGRANEX [Suspect]
     Active Substance: BECAPLERMIN
     Dosage: UNK, TWICE

REACTIONS (2)
  - Off label use [Unknown]
  - Leg amputation [Recovered/Resolved with Sequelae]

NARRATIVE: CASE EVENT DATE: 201512
